FAERS Safety Report 20149805 (Version 1)
Quarter: 2021Q4

REPORT INFORMATION
  Report Type: Report from Study
  Country: CN (occurrence: CN)
  Receive Date: 20211206
  Receipt Date: 20211206
  Transmission Date: 20220304
  Serious: Yes (Other)
  Sender: FDA-Public Use
  Company Number: CN-BRISTOL-MYERS SQUIBB COMPANY-BMS-2021-125259

PATIENT
  Age: 79 Year
  Sex: Female

DRUGS (2)
  1. NIVOLUMAB [Suspect]
     Active Substance: NIVOLUMAB
     Indication: Gastric cancer
     Dosage: 160 MILLIGRAM, Q3WK
     Route: 041
     Dates: start: 20210729
  2. NIVOLUMAB [Suspect]
     Active Substance: NIVOLUMAB
     Dosage: 160 MILLIGRAM, Q3WK
     Route: 041
     Dates: start: 20211129

REACTIONS (3)
  - Leukopenia [Unknown]
  - Hepatic function abnormal [Unknown]
  - Off label use [Unknown]

NARRATIVE: CASE EVENT DATE: 20210729
